FAERS Safety Report 7816233-8 (Version None)
Quarter: 2011Q4

REPORT INFORMATION
  Report Type: 
  Country: None (occurrence: None)
  Receive Date: 20111016
  Receipt Date: 20111007
  Transmission Date: 20120403
  Serious: Yes (Death, Other)
  Sender: FDA-Public Use
  Company Number: US-CELGENEUS-163-21880-11083421

PATIENT
  Sex: Female

DRUGS (11)
  1. ACYCLOVIR [Concomitant]
     Route: 065
  2. ONDANSETRON [Concomitant]
     Route: 065
  3. ARZERRA [Concomitant]
     Route: 065
     Dates: start: 20110101
  4. REVLIMID [Suspect]
     Dosage: 5 MILLIGRAM
     Route: 048
     Dates: start: 20110601, end: 20110701
  5. REVLIMID [Suspect]
     Dosage: 2.5 MILLIGRAM
     Route: 048
     Dates: start: 20110706, end: 20110701
  6. ASPIRIN [Concomitant]
     Route: 065
  7. DIPHENHYDRAMINE HCL [Concomitant]
     Route: 065
  8. FAMOTIDINE [Concomitant]
     Route: 065
  9. SOLU-CORTEF [Concomitant]
     Route: 065
  10. HYDROCORTISONE [Concomitant]
     Route: 065
  11. ALLOPURINOL [Concomitant]
     Route: 065

REACTIONS (2)
  - PANCYTOPENIA [None]
  - CHRONIC LYMPHOCYTIC LEUKAEMIA [None]
